FAERS Safety Report 19950538 (Version 2)
Quarter: 2021Q4

REPORT INFORMATION
  Report Type: Report from Study
  Country: US (occurrence: US)
  Receive Date: 20211013
  Receipt Date: 20211015
  Transmission Date: 20220303
  Serious: No
  Sender: FDA-Public Use
  Company Number: NVSC2021US234342

PATIENT
  Age: 78 Year
  Sex: Female

DRUGS (1)
  1. PIQRAY [Suspect]
     Active Substance: ALPELISIB
     Indication: Product used for unknown indication
     Dosage: 200 MG, QD
     Route: 048

REACTIONS (1)
  - Tongue discomfort [Unknown]

NARRATIVE: CASE EVENT DATE: 20211012
